FAERS Safety Report 8034245-9 (Version None)
Quarter: 2012Q1

REPORT INFORMATION
  Report Type: 
  Country: None (occurrence: None)
  Receive Date: 20120110
  Receipt Date: 20120104
  Transmission Date: 20120608
  Serious: Yes (Hospitalization, Other)
  Sender: FDA-Public Use
  Company Number: PL-JNJFOC-20100510454

PATIENT
  Sex: Male
  Weight: 68 kg

DRUGS (7)
  1. DICLOFENAC SODIUM [Concomitant]
     Route: 048
     Dates: start: 20030724
  2. HYDROCORTISONE [Concomitant]
     Route: 061
     Dates: start: 20060101
  3. METHOTREXATE [Concomitant]
     Route: 048
     Dates: start: 20020613
  4. GOLIMUMAB [Suspect]
     Route: 058
     Dates: end: 20100301
  5. GOLIMUMAB [Suspect]
     Indication: PSORIATIC ARTHROPATHY
     Route: 058
     Dates: start: 20060918
  6. METHYLPREDNISOLONE [Concomitant]
     Route: 048
     Dates: start: 20030101
  7. FOLIC ACID [Concomitant]
     Route: 048

REACTIONS (1)
  - BLADDER TRANSITIONAL CELL CARCINOMA [None]
